FAERS Safety Report 7691362-0 (Version None)
Quarter: 2011Q3

REPORT INFORMATION
  Report Type: 
  Country: None (occurrence: None)
  Receive Date: 20110818
  Receipt Date: 20110804
  Transmission Date: 20111222
  Serious: Yes (Other)
  Sender: FDA-Public Use
  Company Number: PHHY2011GB72404

PATIENT
  Sex: Female
  Weight: 2.82 kg

DRUGS (3)
  1. IMATINIB MESYLATE [Suspect]
     Dosage: 400 MG, UNK
  2. IMATINIB MESYLATE [Suspect]
     Indication: CHRONIC MYELOID LEUKAEMIA
     Dosage: 400 MG,
     Dates: start: 20001213
  3. HYDROXYUREA [Concomitant]
     Dosage: UNK UKN, UNK

REACTIONS (2)
  - MATERNAL EXPOSURE DURING PREGNANCY [None]
  - PYLORIC STENOSIS [None]
